FAERS Safety Report 6942600-0 (Version None)
Quarter: 2010Q3

REPORT INFORMATION
  Report Type: 
  Country: None (occurrence: None)
  Receive Date: 20100823
  Receipt Date: 20100811
  Transmission Date: 20110219
  Serious: Yes (Death, Life-Threatening, Hospitalization)
  Sender: FDA-Public Use
  Company Number: TW-JNJFOC-20080906077

PATIENT
  Age: 74 Year
  Sex: Female
  Weight: 50.4 kg

DRUGS (1)
  1. DECITABINE (DECITABINE) LYOPHILIZED POWDER [Suspect]
     Indication: ACUTE MYELOID LEUKAEMIA
     Dosage: 29 MG, 1 IN 1 DAY, INTRAVENOUS
     Route: 042
     Dates: start: 20080828, end: 20080901

REACTIONS (7)
  - ACUTE RESPIRATORY DISTRESS SYNDROME [None]
  - FUNGAL TEST POSITIVE [None]
  - HERPES SIMPLEX [None]
  - LOBAR PNEUMONIA [None]
  - PNEUMONITIS [None]
  - RENAL FAILURE ACUTE [None]
  - SEPSIS [None]
